FAERS Safety Report 16541352 (Version 2)
Quarter: 2019Q3

REPORT INFORMATION
  Report Type: Spontaneous
  Country: DE (occurrence: DE)
  Receive Date: 20190708
  Receipt Date: 20190709
  Transmission Date: 20191004
  Serious: Yes (Hospitalization, Other)
  Sender: FDA-Public Use
  Company Number: DE-TEVA-2019-DE-1073170

PATIENT
  Age: 79 Year
  Sex: Male

DRUGS (9)
  1. METOPROLOL. [Concomitant]
     Active Substance: METOPROLOL
     Dosage: 47.5 MG, 1-0-1-0
     Route: 065
  2. DIGITOXIN [Concomitant]
     Active Substance: DIGITOXIN
     Dosage: 0.07 MG, 1-0-0-0
     Route: 065
  3. CLEXANE [Concomitant]
     Active Substance: ENOXAPARIN SODIUM
     Dosage: 0.7 ML, 0-0-1-0
     Route: 065
  4. PANTOPRAZOL [Suspect]
     Active Substance: PANTOPRAZOLE SODIUM
     Dosage: 40 MG, 1-0-1-0
  5. ALNA 0,4 MG RETARDKAPSELN [Concomitant]
     Dosage: 0.4 MG, 1-0-0-0
  6. ULCOGANT [Suspect]
     Active Substance: SUCRALFATE
     Dosage: 1-1-1-0
  7. NOVONORM 1 MG [Concomitant]
     Active Substance: REPAGLINIDE
     Dosage: 1 MG, 1-1-0-0
     Route: 065
  8. METFORMIN [Concomitant]
     Active Substance: METFORMIN HYDROCHLORIDE
     Dosage: 850 MG, 1-0-1-0
     Route: 065
  9. AMLODIPINE W/VALSARTAN [Concomitant]
     Active Substance: AMLODIPINE\VALSARTAN
     Dosage: 160|5 MG, 1-0-0-0
     Route: 065

REACTIONS (4)
  - Constipation [Unknown]
  - Acute abdomen [Unknown]
  - Product prescribing error [Unknown]
  - Abdominal pain lower [Unknown]
